FAERS Safety Report 25347287 (Version 1)
Quarter: 2025Q2

REPORT INFORMATION
  Report Type: Spontaneous
  Country: IT (occurrence: IT)
  Receive Date: 20250522
  Receipt Date: 20250522
  Transmission Date: 20250717
  Serious: Yes (Death)
  Sender: TAIHO ONCOLOGY INC
  Company Number: IT-MMM-Otsuka-9Y1N7UW4

PATIENT
  Sex: Female

DRUGS (1)
  1. INQOVI [Suspect]
     Active Substance: CEDAZURIDINE\DECITABINE
     Indication: Acute myeloid leukaemia
     Route: 048

REACTIONS (5)
  - Death [Fatal]
  - Decreased appetite [Unknown]
  - General physical health deterioration [Unknown]
  - Vomiting [Unknown]
  - Diarrhoea [Unknown]
